FAERS Safety Report 12397475 (Version 1)
Quarter: 2016Q2

REPORT INFORMATION
  Report Type: Spontaneous
  Country: US (occurrence: None)
  Receive Date: 20160523
  Receipt Date: 20160523
  Transmission Date: 20160815
  Serious: Yes (Disabling)
  Sender: FDA-Public Use
  Company Number: None

PATIENT
  Age: 68 Year
  Sex: Male
  Weight: 95.26 kg

DRUGS (5)
  1. POTASSIUM CL ER 10 MEQ TABLET, 10 MEQ [Suspect]
     Active Substance: POTASSIUM CHLORIDE
     Indication: BLOOD POTASSIUM DECREASED
     Route: 048
     Dates: start: 20160520, end: 20160521
  2. ASPIRIN. [Concomitant]
     Active Substance: ASPIRIN
  3. MULTIVITAMIN [Concomitant]
     Active Substance: VITAMINS
  4. SERTRALINE [Concomitant]
     Active Substance: SERTRALINE HYDROCHLORIDE
  5. LABETALOL [Concomitant]
     Active Substance: LABETALOL\LABETALOL HYDROCHLORIDE

REACTIONS (5)
  - Product substitution issue [None]
  - Joint stiffness [None]
  - Confusional state [None]
  - Limb discomfort [None]
  - Gait disturbance [None]

NARRATIVE: CASE EVENT DATE: 20160521
